FAERS Safety Report 18354830 (Version 1)
Quarter: 2020Q4

REPORT INFORMATION
  Report Type: Spontaneous
  Country: JP (occurrence: JP)
  Receive Date: 20201007
  Receipt Date: 20201007
  Transmission Date: 20210114
  Serious: Yes (Death, Other)
  Sender: FDA-Public Use
  Company Number: JP-ROCHE-2689907

PATIENT
  Age: 80 Year
  Sex: Male

DRUGS (1)
  1. AVASTIN [Suspect]
     Active Substance: BEVACIZUMAB
     Indication: LUNG NEOPLASM MALIGNANT
     Dosage: DOSAGE WAS UNCERTAIN AND ADMINISTERING FOR 13 MONTHS
     Route: 041
     Dates: start: 20120727, end: 201308

REACTIONS (2)
  - Thrombophlebitis migrans [Unknown]
  - Death [Fatal]

NARRATIVE: CASE EVENT DATE: 201307
